FAERS Safety Report 9379666 (Version 3)
Quarter: 2013Q3

REPORT INFORMATION
  Report Type: Spontaneous
  Country: US (occurrence: US)
  Receive Date: 20130702
  Receipt Date: 20130917
  Transmission Date: 20140515
  Serious: Yes (Death)
  Sender: FDA-Public Use
  Company Number: US-ELI_LILLY_AND_COMPANY-US201306008290

PATIENT
  Sex: Male
  Weight: 140.59 kg

DRUGS (11)
  1. ZYPREXA RELPREVV [Suspect]
     Indication: SCHIZOPHRENIA
     Dosage: 300 MG, MONTHLY (1/M)
     Route: 030
     Dates: start: 20100528
  2. ZYPREXA RELPREVV [Suspect]
     Indication: SCHIZOAFFECTIVE DISORDER
     Dosage: 405 MG, MONTHLY (1/M)
     Route: 030
  3. SEROQUEL [Concomitant]
     Dosage: 300 MG, BID
     Route: 048
     Dates: start: 20100412, end: 20100510
  4. SEROQUEL [Concomitant]
     Dosage: 300 MG, QD
     Route: 048
     Dates: start: 20100510, end: 20100720
  5. SEROQUEL [Concomitant]
     Dosage: 300 MG, PRN
     Route: 048
     Dates: start: 20100721, end: 20121029
  6. VISTARIL                           /00058403/ [Concomitant]
     Dosage: 25 MG, BID
     Route: 048
  7. PROZAC [Concomitant]
     Dosage: 20 MG, QD
     Route: 048
     Dates: start: 20100412
  8. ESKALITH [Concomitant]
     Dosage: 450 MG, TID
     Dates: start: 20100412
  9. METOPROLOL [Concomitant]
     Dosage: UNK, UNKNOWN
     Route: 048
     Dates: start: 20100317
  10. FERROUS SULFATE [Concomitant]
     Dosage: UNK, BID
     Route: 048
     Dates: start: 20100317
  11. HALDOL                             /00027401/ [Concomitant]
     Dosage: 12.5 MG, MONTHLY (1/M)
     Route: 030
     Dates: start: 20100618, end: 20101022

REACTIONS (1)
  - Cardiovascular disorder [Fatal]
